FAERS Safety Report 17761955 (Version 4)
Quarter: 2023Q2

REPORT INFORMATION
  Report Type: Report from Study
  Country: BE (occurrence: BE)
  Receive Date: 20200508
  Receipt Date: 20230620
  Transmission Date: 20230721
  Serious: Yes (Life-Threatening, Hospitalization)
  Sender: FDA-Public Use
  Company Number: BE-KOREA IPSEN PHARMA-2020-07945

PATIENT

DRUGS (9)
  1. CABOZANTINIB [Suspect]
     Active Substance: CABOZANTINIB
     Indication: Renal cell carcinoma
     Dosage: 60 MG, QD
     Route: 048
     Dates: start: 20200401, end: 20200417
  2. ASAFLOW EG [Concomitant]
     Indication: Prophylaxis
     Dosage: 100 MG, QD
     Route: 048
     Dates: start: 2016
  3. COVERAM 5-5 MG [Concomitant]
     Indication: Hypertension
     Dosage: 1 TABLET, QD
     Route: 048
  4. CHOLECALCIFEROL [Concomitant]
     Active Substance: CHOLECALCIFEROL
     Indication: Vitamin D deficiency
     Dosage: 2500 UNITS, WEEKLY
     Route: 048
     Dates: start: 2016
  5. JANUVIA [Concomitant]
     Active Substance: SITAGLIPTIN PHOSPHATE
     Indication: Diabetes mellitus
     Dosage: 25 MG, QD
     Route: 048
     Dates: start: 2014
  6. METFORMIN [Concomitant]
     Active Substance: METFORMIN HYDROCHLORIDE
     Indication: Diabetes mellitus
     Dosage: 85 MG, BID
     Route: 048
     Dates: start: 2014
  7. SIMVASTATIN [Concomitant]
     Active Substance: SIMVASTATIN
     Indication: Hyperlipidaemia
     Dosage: 40 MG, QD
     Route: 048
  8. UNI-DIAMICRON [Concomitant]
     Indication: Diabetes mellitus
     Dosage: 60 MG, BID
     Route: 048
     Dates: start: 2015
  9. MACROGOL PLUS EL EG 13.7 G [Concomitant]
     Indication: Constipation
     Dosage: 1 POUCH, QD
     Route: 048

REACTIONS (2)
  - Asthenia [Recovered/Resolved]
  - Urinary tract infection [Recovered/Resolved]

NARRATIVE: CASE EVENT DATE: 20200417
